FAERS Safety Report 4532678-6 (Version None)
Quarter: 2004Q4

REPORT INFORMATION
  Report Type: 
  Country: None (occurrence: None)
  Receive Date: 20041220
  Receipt Date: 20041220
  Transmission Date: 20050328
  Serious: Yes (Hospitalization)
  Sender: FDA-Public Use
  Company Number: None

PATIENT
  Age: 40 Year
  Sex: Male

DRUGS (10)
  1. GENTAMICIN [Suspect]
     Indication: STAPHYLOCOCCAL BACTERAEMIA
     Dosage: 200 MG IV QD
     Route: 042
  2. NAFCILLIN [Suspect]
     Indication: STAPHYLOCOCCAL BACTERAEMIA
     Dosage: 2 GM IV Q 4 HR
     Route: 042
  3. ATAZANAVIR [Concomitant]
  4. LAMIVUDINE [Concomitant]
  5. RITONAVIR [Concomitant]
  6. TENOFAVIR [Concomitant]
  7. PROTONIX [Concomitant]
  8. AZITHROMYCIN [Concomitant]
  9. BACTRIM DS [Concomitant]
  10. NEURONTIN [Concomitant]

REACTIONS (6)
  - CHILLS [None]
  - LEUKOPENIA [None]
  - NAUSEA [None]
  - PYREXIA [None]
  - RENAL FAILURE ACUTE [None]
  - VOMITING [None]
